FAERS Safety Report 7370534-9 (Version None)
Quarter: 2011Q1

REPORT INFORMATION
  Report Type: 
  Country: None (occurrence: None)
  Receive Date: 20110323
  Receipt Date: 20070222
  Transmission Date: 20110831
  Serious: Yes (Hospitalization, Other)
  Sender: FDA-Public Use
  Company Number: US-ELI_LILLY_AND_COMPANY-US200511001036

PATIENT
  Age: 8 Year
  Sex: Female
  Weight: 24.2 kg

DRUGS (3)
  1. MEBENDAZOLE [Concomitant]
     Indication: ENTEROBIASIS
     Dosage: 100 MG, UNK
     Route: 048
     Dates: start: 20050330
  2. STRATTERA [Suspect]
     Dosage: 25 MG, UNK
     Dates: start: 20050321
  3. TYLENOL CHILDRENS CHEWABLE TABLETS [Concomitant]
     Indication: PAIN
     Route: 048

REACTIONS (9)
  - CHROMATURIA [None]
  - ENTEROBIASIS [None]
  - PRURITUS [None]
  - HEPATITIS [None]
  - CHOLESTASIS [None]
  - PROTHROMBIN TIME PROLONGED [None]
  - RASH [None]
  - NAUSEA [None]
  - HYPERTENSION [None]
